FAERS Safety Report 14250041 (Version 1)
Quarter: 2017Q4

REPORT INFORMATION
  Report Type: Spontaneous
  Country: US (occurrence: US)
  Receive Date: 20171205
  Receipt Date: 20171205
  Transmission Date: 20180321
  Serious: Yes (Other)
  Sender: FDA-Public Use
  Company Number: US-BRISTOL-MYERS SQUIBB COMPANY-BMS-2017-108169

PATIENT
  Sex: Female
  Weight: 95.7 kg

DRUGS (2)
  1. BIOFLEX /00808401/ [Suspect]
     Active Substance: ACETAMINOPHEN\METHOCARBAMOL
     Indication: PRODUCT USED FOR UNKNOWN INDICATION
     Route: 065
  2. COUMADIN [Suspect]
     Active Substance: WARFARIN SODIUM
     Indication: THROMBOSIS
     Dosage: UNK, BID
     Route: 065

REACTIONS (3)
  - Mouth haemorrhage [Unknown]
  - Atrial fibrillation [Unknown]
  - Drug ineffective [Unknown]
